FAERS Safety Report 7549587-0 (Version None)
Quarter: 2011Q2

REPORT INFORMATION
  Report Type: 
  Country: None (occurrence: None)
  Receive Date: 20110615
  Receipt Date: 20110609
  Transmission Date: 20111010
  Serious: Yes (Death)
  Sender: FDA-Public Use
  Company Number: A0930931A

PATIENT
  Age: 83 Year
  Sex: Male

DRUGS (4)
  1. VENTOLIN HFA [Suspect]
     Dosage: 2PUFF AS REQUIRED
     Route: 055
  2. AVODART [Suspect]
     Dosage: 1CAP PER DAY
     Route: 048
  3. VALTREX [Suspect]
     Dosage: 1CAPL PER DAY
     Route: 048
  4. NO CONCURRENT MEDICATION [Concomitant]

REACTIONS (1)
  - DEATH [None]
